FAERS Safety Report 21616901 (Version 1)
Quarter: 2022Q4

REPORT INFORMATION
  Report Type: Spontaneous
  Country: US (occurrence: US)
  Receive Date: 20221118
  Receipt Date: 20221118
  Transmission Date: 20230113
  Serious: No
  Sender: FDA-Public Use
  Company Number: US-BAYER-2022A155069

PATIENT
  Age: 11 Year
  Sex: Female

DRUGS (2)
  1. CHILDREN ASTEPRO ALLERGY [Suspect]
     Active Substance: AZELASTINE HYDROCHLORIDE
     Indication: Hypersensitivity
     Dosage: 1 SPRAY IN EACH NOSTRILS
     Dates: start: 20221103, end: 20221104
  2. CHILDREN ASTEPRO ALLERGY [Suspect]
     Active Substance: AZELASTINE HYDROCHLORIDE
     Indication: Nasopharyngitis

REACTIONS (2)
  - Retching [None]
  - Vomiting [None]

NARRATIVE: CASE EVENT DATE: 20221103
